FAERS Safety Report 7319140-2 (Version None)
Quarter: 2011Q1

REPORT INFORMATION
  Report Type: 
  Country: None (occurrence: None)
  Receive Date: 20110228
  Receipt Date: 20110216
  Transmission Date: 20110831
  Serious: Yes (Disabling)
  Sender: FDA-Public Use
  Company Number: PHHY2011CH12234

PATIENT

DRUGS (3)
  1. SINTROM [Concomitant]
     Dosage: 02 MG DAILY
  2. ZOMETA [Suspect]
     Indication: PROSTATE CANCER
     Dosage: 04 MG EVERY 06 WEEKS
     Route: 042
     Dates: start: 20080101
  3. DAFALGAN [Concomitant]
     Dosage: 1000 MG DAILY

REACTIONS (1)
  - OSTEONECROSIS OF JAW [None]
